FAERS Safety Report 17201460 (Version 5)
Quarter: 2024Q3

REPORT INFORMATION
  Report Type: Spontaneous
  Country: SK (occurrence: SK)
  Receive Date: 20191226
  Receipt Date: 20240703
  Transmission Date: 20241017
  Serious: Yes (Hospitalization, Other)
  Sender: PFIZER
  Company Number: SK-STADA-191190

PATIENT
  Age: 72 Year
  Sex: Female
  Weight: 70 kg

DRUGS (7)
  1. FILGRASTIM [Interacting]
     Active Substance: FILGRASTIM
     Indication: Pancytopenia
     Dosage: 48 MU SC, 1X/DAY
     Route: 058
  2. FILGRASTIM [Interacting]
     Active Substance: FILGRASTIM
     Indication: Agranulocytosis
  3. METAMIZOLE [Interacting]
     Active Substance: METAMIZOLE
     Indication: Abdominal pain
     Dosage: 2500 MG, 3X/DAY
     Route: 042
  4. THIETHYLPERAZINE [Concomitant]
     Active Substance: THIETHYLPERAZINE
     Indication: Subileus
     Dosage: 6.5 MG, 3X/DAY
  5. TRIMECAINE [Concomitant]
     Active Substance: TRIMECAINE
     Indication: Subileus
     Dosage: 10 MG, 3X/DAY (3X10 MG)
  6. FENPIVERINIUM [Concomitant]
     Indication: Subileus
     Dosage: 0.1 MG, 3X/DAY
  7. PITOFENONE [Concomitant]
     Active Substance: PITOFENONE
     Indication: Subileus
     Dosage: 10 MG, 3X/DAY

REACTIONS (2)
  - Inhibitory drug interaction [Recovered/Resolved]
  - Drug ineffective [Recovered/Resolved]
